FAERS Safety Report 4916957-6 (Version None)
Quarter: 2006Q1

REPORT INFORMATION
  Report Type: 
  Country: None (occurrence: None)
  Receive Date: 20060214
  Receipt Date: 20060125
  Transmission Date: 20060701
  Serious: Yes (Other)
  Sender: FDA-Public Use
  Company Number: JP200601002974

PATIENT
  Age: 87 Year
  Sex: Female

DRUGS (7)
  1. EVISTA [Suspect]
     Dosage: ORAL
     Route: 048
  2. NORVASC [Concomitant]
  3. TANATRIL ^TANABE^ (IMIDAPRIL HYDROCHLORIDE) [Concomitant]
  4. FLUITRAN (TRICHLORMETHIAZIDE) [Concomitant]
  5. METHYCOBAL (MECOBALAMIN) [Concomitant]
  6. JUVELA /JPN/ (TOCOPHERYL NICOTINATE) [Concomitant]
  7. DEPAS (ETIZOLAM) [Concomitant]

REACTIONS (4)
  - BLOOD FIBRINOGEN INCREASED [None]
  - CAROTID ARTERY DISEASE [None]
  - CEREBRAL INFARCTION [None]
  - PROTHROMBIN TIME SHORTENED [None]
